FAERS Safety Report 4572238-4 (Version None)
Quarter: 2005Q1

REPORT INFORMATION
  Report Type: 
  Country: None (occurrence: None)
  Receive Date: 20050203
  Receipt Date: 20050125
  Transmission Date: 20050727
  Serious: Yes (Death)
  Sender: FDA-Public Use
  Company Number: BRO-008313

PATIENT
  Age: 14 Year
  Sex: Female

DRUGS (1)
  1. IOPAMIDOL/IOPAMIRO [Suspect]
     Dosage: 10 ML, IT
     Route: 038
     Dates: start: 20040715, end: 20040715

REACTIONS (4)
  - CARDIAC ARREST [None]
  - CONVULSION [None]
  - RESPIRATORY ARREST [None]
  - SHOCK [None]
